FAERS Safety Report 24646987 (Version 1)
Quarter: 2024Q4

REPORT INFORMATION
  Report Type: Spontaneous
  Country: US (occurrence: US)
  Receive Date: 20241121
  Receipt Date: 20241121
  Transmission Date: 20250115
  Serious: Yes (Death, Other)
  Sender: AMGEN
  Company Number: US-AMGEN-USASP2024227586

PATIENT

DRUGS (5)
  1. PREDNISONE [Suspect]
     Active Substance: PREDNISONE
     Indication: Hormone-dependent prostate cancer
     Dosage: 5 MILLIGRAM, QD
     Route: 065
  2. CABOZANTINIB [Concomitant]
     Active Substance: CABOZANTINIB
     Indication: Hormone-dependent prostate cancer
     Dosage: (20 MG TO 30 MG), QD(3+3 DOSE ESCALATION IN 2 COHORTS)
  3. NIVOLUMAB [Concomitant]
     Active Substance: NIVOLUMAB
     Indication: Hormone-dependent prostate cancer
     Dosage: 480 MILLIGRAM, Q4WK
     Route: 040
  4. ABIRATERONE [Concomitant]
     Active Substance: ABIRATERONE\ABIRATERONE ACETATE
     Indication: Hormone-dependent prostate cancer
     Dosage: 1000 MILLIGRAM, QD
  5. DOCETAXEL [Concomitant]
     Active Substance: DOCETAXEL
     Indication: Hormone-dependent prostate cancer
     Dosage: UNK

REACTIONS (13)
  - Hormone-dependent prostate cancer [Fatal]
  - Adrenal insufficiency [Unknown]
  - Encephalitis [Unknown]
  - Therapy partial responder [Unknown]
  - Proteinuria [Unknown]
  - Diarrhoea [Unknown]
  - Toxicity to various agents [Unknown]
  - Aspartate aminotransferase increased [Unknown]
  - Alanine aminotransferase increased [Unknown]
  - Wound dehiscence [Unknown]
  - Wound infection [Unknown]
  - Hypertension [Unknown]
  - Lipase increased [Unknown]
